FAERS Safety Report 14355822 (Version 2)
Quarter: 2019Q1

REPORT INFORMATION
  Report Type: Spontaneous
  Country: FR (occurrence: FR)
  Receive Date: 20180105
  Receipt Date: 20190208
  Transmission Date: 20190417
  Serious: Yes (Hospitalization, Other)
  Sender: FDA-Public Use
  Company Number: FR-MYLANLABS-2018M1000300

PATIENT
  Age: 69 Year
  Sex: Female

DRUGS (6)
  1. BUDESONIDE. [Suspect]
     Active Substance: BUDESONIDE
     Indication: LUNG INFECTION
     Dosage: UNK
     Route: 055
     Dates: start: 20171019
  2. CIPROFLOXACIN                      /00697202/ [Suspect]
     Active Substance: CIPROFLOXACIN HYDROCHLORIDE
     Indication: LUNG INFECTION
     Dosage: 1000 MG, QD
     Route: 048
     Dates: start: 20171026
  3. AMBROXOL [Suspect]
     Active Substance: AMBROXOL
     Indication: LUNG INFECTION
     Dosage: UNK
     Route: 048
     Dates: start: 20171019
  4. FORMOTEROL [Suspect]
     Active Substance: FORMOTEROL
     Indication: LUNG INFECTION
     Dosage: UNK
     Route: 055
     Dates: start: 20171019
  5. PULMICORT TURBUHALER [Suspect]
     Active Substance: BUDESONIDE
     Indication: LUNG INFECTION
     Route: 055
  6. AUGMENTIN [Suspect]
     Active Substance: AMOXICILLIN\CLAVULANATE POTASSIUM
     Indication: LUNG INFECTION
     Dosage: 2 G, QD
     Route: 048
     Dates: start: 20171019, end: 20171026

REACTIONS (2)
  - Neutropenia [Recovered/Resolved]
  - Anaemia [Recovered/Resolved]

NARRATIVE: CASE EVENT DATE: 20171027
